FAERS Safety Report 8512858-5 (Version None)
Quarter: 2012Q3

REPORT INFORMATION
  Report Type: 
  Country: None (occurrence: None)
  Receive Date: 20120716
  Receipt Date: 20120702
  Transmission Date: 20120928
  Serious: No
  Sender: FDA-Public Use
  Company Number: US-ASTRAZENECA-2012SE44977

PATIENT
  Age: 72 Year
  Sex: Female
  Weight: 58.5 kg

DRUGS (1)
  1. NEXIUM [Suspect]
     Indication: GASTROOESOPHAGEAL REFLUX DISEASE
     Route: 048

REACTIONS (4)
  - DYSPHAGIA [None]
  - ACQUIRED OESOPHAGEAL WEB [None]
  - INTENTIONAL DRUG MISUSE [None]
  - DRUG DISPENSING ERROR [None]
